FAERS Safety Report 18448776 (Version 1)
Quarter: 2020Q4

REPORT INFORMATION
  Report Type: Spontaneous
  Country: US (occurrence: US)
  Receive Date: 20201031
  Receipt Date: 20201031
  Transmission Date: 20210114
  Serious: Yes (Other)
  Sender: FDA-Public Use
  Company Number: US-NAPPMUNDI-USA-2020-0152398

PATIENT
  Sex: Female

DRUGS (1)
  1. OXYCODONE HCL CR TABLETS (SIMILAR TO NDA 22-272) [Suspect]
     Active Substance: OXYCODONE HYDROCHLORIDE
     Indication: PAIN
     Dosage: 15MG 1 TABLET, TID
     Route: 048
     Dates: start: 2009

REACTIONS (7)
  - Impaired work ability [Not Recovered/Not Resolved]
  - Wrong technique in device usage process [Unknown]
  - Drug abuse [Unknown]
  - Pain [Unknown]
  - Back pain [Unknown]
  - Feeling abnormal [Not Recovered/Not Resolved]
  - Loss of personal independence in daily activities [Not Recovered/Not Resolved]

NARRATIVE: CASE EVENT DATE: 2019
